FAERS Safety Report 4657473-9 (Version None)
Quarter: 2005Q2

REPORT INFORMATION
  Report Type: 
  Country: None (occurrence: None)
  Receive Date: 20050506
  Receipt Date: 20050422
  Transmission Date: 20051028
  Serious: Yes (Other)
  Sender: FDA-Public Use
  Company Number: 2005-04-1992

PATIENT
  Age: 79 Year
  Sex: Male

DRUGS (5)
  1. CLARITIN [Suspect]
     Indication: RHINORRHOEA
     Dosage: ONCE DAILY ORAL
     Route: 048
     Dates: start: 20050420, end: 20050421
  2. CLARITIN [Suspect]
     Indication: SNEEZING
     Dosage: ONCE DAILY ORAL
     Route: 048
     Dates: start: 20050420, end: 20050421
  3. MONOPRIL [Concomitant]
  4. FLOTX (FOLIC ACID/CYANOCOBALAMIN/PIRIDOXINE HCL) [Concomitant]
  5. ZOCOR [Concomitant]

REACTIONS (1)
  - BENIGN PROSTATIC HYPERPLASIA [None]
